FAERS Safety Report 5771397-5 (Version None)
Quarter: 2008Q2

REPORT INFORMATION
  Report Type: 
  Country: None (occurrence: None)
  Receive Date: 20080613
  Receipt Date: 20080603
  Transmission Date: 20081010
  Serious: Yes (Hospitalization)
  Sender: FDA-Public Use
  Company Number: JP-JNJFOC-20080502177

PATIENT
  Sex: Female
  Weight: 47 kg

DRUGS (9)
  1. REMICADE [Suspect]
     Route: 042
  2. REMICADE [Suspect]
     Indication: RHEUMATOID ARTHRITIS
     Route: 042
  3. RHEUMATREX [Concomitant]
     Indication: RHEUMATOID ARTHRITIS
     Route: 048
  4. FOLIAMIN [Concomitant]
     Route: 048
  5. PREDONINE [Concomitant]
     Route: 048
  6. MOBIC [Concomitant]
     Route: 048
  7. PRORENAL [Concomitant]
     Route: 048
  8. METHYCOOL [Concomitant]
     Route: 048
  9. ALENDRONATE SODIUM [Concomitant]
     Route: 048

REACTIONS (2)
  - HERPES ZOSTER [None]
  - POST HERPETIC NEURALGIA [None]
